FAERS Safety Report 13642193 (Version 1)
Quarter: 2017Q2

REPORT INFORMATION
  Report Type: Spontaneous
  Country: US (occurrence: US)
  Receive Date: 20170612
  Receipt Date: 20170612
  Transmission Date: 20170830
  Serious: Yes (Disabling, Other)
  Sender: FDA-Public Use
  Company Number: None

PATIENT
  Age: 25 Year
  Sex: Female
  Weight: 136.2 kg

DRUGS (4)
  1. DEPO-PROVERA [Suspect]
     Active Substance: MEDROXYPROGESTERONE ACETATE
     Indication: CONTRACEPTION
     Dates: start: 20000505
  2. FRUITS AND NATURAL SWEETS AS TOLD BY COLUMBIAN DOCTOR [Concomitant]
  3. MARINOL [Concomitant]
     Active Substance: DRONABINOL
  4. VITAMIN E [Concomitant]
     Active Substance: .ALPHA.-TOCOPHEROL

REACTIONS (4)
  - Menorrhagia [None]
  - Alopecia [None]
  - Weight increased [None]
  - Mania [None]

NARRATIVE: CASE EVENT DATE: 20000505
